FAERS Safety Report 5559033-4 (Version None)
Quarter: 2007Q4

REPORT INFORMATION
  Report Type: 
  Country: None (occurrence: None)
  Receive Date: 20071214
  Receipt Date: 20070913
  Transmission Date: 20080405
  Serious: No
  Sender: FDA-Public Use
  Company Number: US-ABBOTT-07P-163-0417109-00

PATIENT
  Sex: Female
  Weight: 64.922 kg

DRUGS (3)
  1. HUMIRA [Suspect]
     Indication: CROHN'S DISEASE
     Route: 058
     Dates: start: 20070907, end: 20070907
  2. HUMIRA [Suspect]
     Route: 058
     Dates: start: 20070824, end: 20070824
  3. HUMIRA [Suspect]

REACTIONS (4)
  - ARTHRALGIA [None]
  - BURNING SENSATION [None]
  - HYPOAESTHESIA [None]
  - HYPOAESTHESIA FACIAL [None]
